FAERS Safety Report 15988201 (Version 4)
Quarter: 2019Q2

REPORT INFORMATION
  Report Type: Spontaneous
  Country: IT (occurrence: IT)
  Receive Date: 20190221
  Receipt Date: 20190517
  Transmission Date: 20190711
  Serious: Yes (Death, Hospitalization, Other)
  Sender: FDA-Public Use
  Company Number: IT-BRISTOL-MYERS SQUIBB COMPANY-BMS-2019-015170

PATIENT
  Age: 80 Year
  Sex: Male

DRUGS (4)
  1. OMEPRAZOLE. [Concomitant]
     Active Substance: OMEPRAZOLE
     Indication: PROPHYLAXIS
     Dosage: 20 MILLIGRAM
     Route: 048
     Dates: start: 201810
  2. DIBASE [Concomitant]
     Active Substance: CHOLECALCIFEROL
     Indication: OSTEOPOROSIS
     Dosage: 40 GTT DROPS, QWK
     Route: 048
     Dates: start: 201901
  3. OPDIVO [Suspect]
     Active Substance: NIVOLUMAB
     Indication: SQUAMOUS CELL CARCINOMA OF LUNG
     Dosage: 240 MILLIGRAM, Q2WK
     Route: 042
     Dates: start: 20181003, end: 20190111
  4. FENTANYL. [Concomitant]
     Active Substance: FENTANYL
     Indication: PAIN
     Dosage: 1 DOSAGE FORM
     Route: 062
     Dates: start: 201810

REACTIONS (6)
  - Thrombocytopenia [Not Recovered/Not Resolved]
  - Blood creatinine abnormal [Unknown]
  - Lung infection [Fatal]
  - Aortic aneurysm [Unknown]
  - Malignant neoplasm progression [Fatal]
  - Bone marrow failure [Unknown]

NARRATIVE: CASE EVENT DATE: 20190207
